FAERS Safety Report 7673253-4 (Version None)
Quarter: 2011Q3

REPORT INFORMATION
  Report Type: 
  Country: None (occurrence: None)
  Receive Date: 20110810
  Receipt Date: 20110805
  Transmission Date: 20111222
  Serious: Yes (Life-Threatening)
  Sender: FDA-Public Use
  Company Number: FR-PFIZER INC-2011134915

PATIENT
  Age: 55 Year
  Sex: Female

DRUGS (1)
  1. SOLU-MEDROL [Suspect]
     Indication: PREMEDICATION
     Dosage: 1 GBQ, SINGLE
     Route: 042
     Dates: start: 20110520, end: 20110520

REACTIONS (1)
  - CARDIO-RESPIRATORY ARREST [None]
